FAERS Safety Report 5266815-5 (Version None)
Quarter: 2007Q1

REPORT INFORMATION
  Report Type: 
  Country: None (occurrence: None)
  Receive Date: 20070316
  Receipt Date: 20070307
  Transmission Date: 20070707
  Serious: Yes (Other)
  Sender: FDA-Public Use
  Company Number: ES-JNJFOC-20070302245

PATIENT
  Age: 45 Year
  Sex: Male

DRUGS (6)
  1. REMICADE [Suspect]
     Dosage: 19TH INFUSION
  2. REMICADE [Suspect]
  3. REMICADE [Suspect]
     Indication: ANKYLOSING SPONDYLITIS
  4. INDOMETHACIN [Concomitant]
  5. FIBRATES [Concomitant]
  6. SULFONYLUREA [Concomitant]
     Indication: DIABETES MELLITUS

REACTIONS (1)
  - ALOPECIA AREATA [None]
